FAERS Safety Report 7120144-3 (Version None)
Quarter: 2010Q4

REPORT INFORMATION
  Report Type: 
  Country: None (occurrence: None)
  Receive Date: 20101123
  Receipt Date: 20101116
  Transmission Date: 20110411
  Serious: Yes (Other)
  Sender: FDA-Public Use
  Company Number: US-AMGEN-QUU399777

PATIENT

DRUGS (2)
  1. NPLATE [Suspect]
     Indication: IDIOPATHIC THROMBOCYTOPENIC PURPURA
     Dosage: 10 A?G/KG, QWK
     Dates: start: 20090910, end: 20100218
  2. NPLATE [Suspect]
     Dates: start: 20090910, end: 20100225

REACTIONS (3)
  - BIOPSY BONE MARROW ABNORMAL [None]
  - DRUG INEFFECTIVE [None]
  - THERAPEUTIC RESPONSE DECREASED [None]
